FAERS Safety Report 9524808 (Version 1)
Quarter: 2013Q3

REPORT INFORMATION
  Report Type: Spontaneous
  Country: US (occurrence: None)
  Receive Date: 20130912
  Receipt Date: 20130912
  Transmission Date: 20140515
  Serious: Yes (Life-Threatening)
  Sender: FDA-Public Use
  Company Number: None

PATIENT
  Age: 30 Year
  Sex: Female
  Weight: 71.67 kg

DRUGS (1)
  1. LAMICTAL [Suspect]
     Indication: MOOD ALTERED
     Dosage: TAKEN BY MOUTH
     Route: 048

REACTIONS (6)
  - Product substitution issue [None]
  - Product quality issue [None]
  - Feeling abnormal [None]
  - Fatigue [None]
  - Confusional state [None]
  - Suicidal ideation [None]
